FAERS Safety Report 22211030 (Version 1)
Quarter: 2023Q2

REPORT INFORMATION
  Report Type: Spontaneous
  Country: US (occurrence: US)
  Receive Date: 20230414
  Receipt Date: 20230414
  Transmission Date: 20230722
  Serious: No
  Sender: FDA-Public Use
  Company Number: US-VIIV HEALTHCARE LIMITED-US2023AMR050146

PATIENT
  Sex: Male

DRUGS (2)
  1. RILPIVIRINE [Suspect]
     Active Substance: RILPIVIRINE
     Indication: Product used for unknown indication
     Dosage: UNK UNK, Z, LONG ACTING INJECTABLES 600MG CAB AND 900MG RPV GIVEN ONCE EVERY 2M
     Route: 065
  2. CABOTEGRAVIR [Suspect]
     Active Substance: CABOTEGRAVIR
     Indication: Product used for unknown indication
     Dosage: UNK UNK, Z, LONG ACTING INJECTABLES 600MG CAB AND 900MG RPV GIVEN ONCE EVERY 2M
     Route: 065

REACTIONS (3)
  - Injection site pain [Unknown]
  - Pain [Unknown]
  - Bursitis [Unknown]
